FAERS Safety Report 8974885 (Version 1)
Quarter: 2012Q4

REPORT INFORMATION
  Report Type: Spontaneous
  Country: US (occurrence: None)
  Receive Date: 20121218
  Receipt Date: 20121218
  Transmission Date: 20130627
  Serious: Yes (Other)
  Sender: FDA-Public Use
  Company Number: None

PATIENT
  Age: 61 Year
  Sex: Male
  Weight: 91.63 kg

DRUGS (1)
  1. DILTIAZEM [Suspect]
     Indication: ATRIAL FIBRILLATION
     Dates: start: 20121112, end: 20121202

REACTIONS (4)
  - Hepatic pain [None]
  - Feeling abnormal [None]
  - Product formulation issue [None]
  - Toxicity to various agents [None]
